FAERS Safety Report 5316754-6 (Version None)
Quarter: 2007Q2

REPORT INFORMATION
  Report Type: 
  Country: None (occurrence: None)
  Receive Date: 20070504
  Receipt Date: 20070425
  Transmission Date: 20071010
  Serious: Yes (Other)
  Sender: FDA-Public Use
  Company Number: US-JNJFOC-20070405615

PATIENT
  Sex: Male
  Weight: 58.97 kg

DRUGS (1)
  1. REMICADE [Suspect]
     Indication: CROHN'S DISEASE
     Dosage: ON INFLIXIMAB 8-9 YEARS
     Route: 042

REACTIONS (2)
  - GROIN PAIN [None]
  - LYMPHOMA [None]
